FAERS Safety Report 8854004 (Version 1)
Quarter: 2012Q4

REPORT INFORMATION
  Report Type: Spontaneous
  Country: US (occurrence: None)
  Receive Date: 20121019
  Receipt Date: 20121019
  Transmission Date: 20130627
  Serious: No
  Sender: FDA-Public Use
  Company Number: None

PATIENT
  Age: 81 Year
  Sex: Female
  Weight: 56.7 kg

DRUGS (1)
  1. FLUTICASONE [Suspect]
     Indication: RESPIRATORY DISORDER
     Dosage: one spray in naostril once daily, spray
     Route: 045
     Dates: start: 20120723, end: 201208

REACTIONS (2)
  - Candidiasis [None]
  - Product quality issue [None]
